FAERS Safety Report 5715142-8 (Version None)
Quarter: 2008Q2

REPORT INFORMATION
  Report Type: 
  Country: None (occurrence: None)
  Receive Date: 20080423
  Receipt Date: 20080327
  Transmission Date: 20081010
  Serious: No
  Sender: FDA-Public Use
  Company Number: US-BOEHRINGER INGELHEIM GMBH, GERMANY-2008-BP-04915BP

PATIENT
  Sex: Female

DRUGS (7)
  1. SPIRIVA [Suspect]
     Indication: ASTHMA
     Dates: start: 20060101
  2. SPIRIVA [Suspect]
     Indication: CHRONIC OBSTRUCTIVE PULMONARY DISEASE
  3. SPIRIVA [Suspect]
     Indication: BRONCHITIS CHRONIC
  4. XOPENEX [Concomitant]
  5. THEOPHYLLINE [Concomitant]
  6. ADVAIR HFA [Concomitant]
     Indication: DYSPNOEA
  7. ALBUTEROL SULFATE [Concomitant]
     Indication: DYSPNOEA

REACTIONS (2)
  - PRURITUS GENERALISED [None]
  - RASH [None]
